FAERS Safety Report 22332130 (Version 1)
Quarter: 2023Q2

REPORT INFORMATION
  Report Type: Spontaneous
  Country: US (occurrence: None)
  Receive Date: 20230516
  Receipt Date: 20230516
  Transmission Date: 20230722
  Serious: No
  Sender: FDA-Public Use
  Company Number: None

PATIENT
  Age: 72 Year
  Sex: Female
  Weight: 73.8 kg

DRUGS (3)
  1. DORZOLAMIDE HYDROCHLORIDE AND TIMOLOL MALEATE OPHTHALMIC SOLUTION [Suspect]
     Active Substance: DORZOLAMIDE HYDROCHLORIDE\TIMOLOL MALEATE
     Dosage: FREQUENCY : TWICE A DAY;?
     Route: 047
     Dates: start: 20230301, end: 20230515
  2. Lantantroprost opthamalic 2% [Concomitant]
  3. VITAMIN D [Concomitant]
     Active Substance: VITAMIN D NOS

REACTIONS (4)
  - Swelling of eyelid [None]
  - Eyelid pain [None]
  - Headache [None]
  - Recalled product administered [None]

NARRATIVE: CASE EVENT DATE: 20230515
